FAERS Safety Report 8585705-3 (Version None)
Quarter: 2012Q3

REPORT INFORMATION
  Report Type: 
  Country: None (occurrence: None)
  Receive Date: 20120810
  Receipt Date: 20120724
  Transmission Date: 20120928
  Serious: No
  Sender: FDA-Public Use
  Company Number: US-ASTRAZENECA-2012SE52715

PATIENT
  Age: 62 Year
  Sex: Female

DRUGS (2)
  1. NEXIUM [Suspect]
     Route: 048
  2. BRILINTA [Suspect]
     Route: 048

REACTIONS (3)
  - BLEPHAROSPASM [None]
  - EXCESSIVE EYE BLINKING [None]
  - LIP SWELLING [None]
